FAERS Safety Report 8086311-X (Version None)
Quarter: 2012Q1

REPORT INFORMATION
  Report Type: 
  Country: None (occurrence: None)
  Receive Date: 20120128
  Receipt Date: 20110509
  Transmission Date: 20120608
  Serious: No
  Sender: FDA-Public Use
  Company Number: US-ABBOTT-11P-163-0724407-00

PATIENT
  Sex: Male
  Weight: 90.8 kg

DRUGS (5)
  1. UNKNOWN MEDICATION [Concomitant]
     Indication: MECHANICAL URTICARIA
  2. HUMIRA [Suspect]
     Indication: PSORIASIS
     Dosage: DAY 1
     Route: 058
     Dates: start: 20110501, end: 20110501
  3. UNKNOWN MEDICATION [Concomitant]
     Indication: HYPERSENSITIVITY
  4. UNKNOWN MEDICATION [Concomitant]
     Indication: HYPERTENSION
  5. HUMIRA [Suspect]
     Dosage: DAY 8
     Dates: start: 20110509

REACTIONS (6)
  - CONTUSION [None]
  - DEVICE MALFUNCTION [None]
  - INJECTION SITE HAEMATOMA [None]
  - INCORRECT ROUTE OF DRUG ADMINISTRATION [None]
  - INAPPROPRIATE SCHEDULE OF DRUG ADMINISTRATION [None]
  - ARTHRITIS [None]
